FAERS Safety Report 9750835 (Version 1)
Quarter: 2013Q4

REPORT INFORMATION
  Report Type: Spontaneous
  Country: US (occurrence: US)
  Receive Date: 20131212
  Receipt Date: 20131212
  Transmission Date: 20140711
  Serious: No
  Sender: FDA-Public Use
  Company Number: US-BIOGENIDEC-2013BI101590

PATIENT
  Sex: Female

DRUGS (17)
  1. TECFIDERA [Suspect]
     Indication: MULTIPLE SCLEROSIS
     Route: 048
     Dates: start: 20131002
  2. AMANTADINE HCL [Concomitant]
  3. ASPIRIN [Concomitant]
  4. CRESTOR [Concomitant]
  5. ESTRACE [Concomitant]
  6. GLUCOPHAGE [Concomitant]
  7. GLYBURIDE [Concomitant]
  8. IBUPROFEN [Concomitant]
  9. KLONOPIN [Concomitant]
  10. LASIX [Concomitant]
  11. LOPRESSOR [Concomitant]
  12. LORTAB 10 [Concomitant]
  13. METFORMIN HCL [Concomitant]
  14. NEURONTIN [Concomitant]
  15. PAXIL [Concomitant]
  16. PEPCID [Concomitant]
  17. PERCOCET [Concomitant]

REACTIONS (1)
  - Hyperhidrosis [Unknown]
